FAERS Safety Report 18142795 (Version 2)
Quarter: 2020Q3

REPORT INFORMATION
  Report Type: Spontaneous
  Country: US (occurrence: US)
  Receive Date: 20200812
  Receipt Date: 20200828
  Transmission Date: 20201103
  Serious: Yes (Hospitalization)
  Sender: FDA-Public Use
  Company Number: US-TEVA-2020-US-1812722

PATIENT
  Age: 51 Year
  Sex: Male

DRUGS (16)
  1. VANCOMYCIN [Concomitant]
     Active Substance: VANCOMYCIN
     Indication: PNEUMONIA BACTERIAL
     Route: 065
  2. METOPROLOL. [Concomitant]
     Active Substance: METOPROLOL
     Indication: HYPERTENSION
     Route: 065
  3. LOVENOX [Concomitant]
     Active Substance: ENOXAPARIN SODIUM
     Indication: PRODUCT USED FOR UNKNOWN INDICATION
     Route: 065
  4. AZITHROMYCIN ANHYDROUS. [Concomitant]
     Active Substance: AZITHROMYCIN ANHYDROUS
     Indication: PNEUMONIA BACTERIAL
     Route: 065
  5. HALOPERIDOL. [Suspect]
     Active Substance: HALOPERIDOL
     Indication: PSYCHOTIC BEHAVIOUR
     Dosage: AT 6:51 PM
     Route: 042
  6. LAMOTRIGINE. [Concomitant]
     Active Substance: LAMOTRIGINE
     Indication: BIPOLAR DISORDER
     Dosage: 25 MILLIGRAM DAILY;
     Route: 065
  7. OSELTAMIVIR [Concomitant]
     Active Substance: OSELTAMIVIR
     Indication: INFLUENZA LIKE ILLNESS
     Route: 065
  8. HALOPERIDOL. [Suspect]
     Active Substance: HALOPERIDOL
     Indication: AGGRESSION
     Dosage: AT 9:32 PM
     Route: 042
  9. HALOPERIDOL. [Suspect]
     Active Substance: HALOPERIDOL
     Dosage: AT 3.53 AM
     Route: 042
  10. CLOZAPINE. [Suspect]
     Active Substance: CLOZAPINE
     Indication: SCHIZOPHRENIA
     Dosage: 450 MILLIGRAM DAILY;
     Route: 065
  11. HALOPERIDOL. [Suspect]
     Active Substance: HALOPERIDOL
     Dosage: AT 8:47 AM
     Route: 042
  12. NICOTINE. [Concomitant]
     Active Substance: NICOTINE
     Indication: SMOKING CESSATION THERAPY
     Route: 065
  13. HALOPERIDOL. [Suspect]
     Active Substance: HALOPERIDOL
     Dosage: AT 2:23 PM
     Route: 042
  14. ACETAMINOPHEN. [Concomitant]
     Active Substance: ACETAMINOPHEN
     Indication: PNEUMONIA BACTERIAL
     Route: 065
  15. ACETAMINOPHEN. [Concomitant]
     Active Substance: ACETAMINOPHEN
     Indication: INFLUENZA LIKE ILLNESS
     Route: 065
  16. CEFTRIAXONE. [Concomitant]
     Active Substance: CEFTRIAXONE
     Indication: PNEUMONIA BACTERIAL
     Route: 065

REACTIONS (4)
  - Drug-disease interaction [Recovering/Resolving]
  - Neuroleptic malignant syndrome [Recovering/Resolving]
  - Leukocytosis [Recovering/Resolving]
  - Toxicity to various agents [Recovering/Resolving]
